FAERS Safety Report 4968092-9 (Version None)
Quarter: 2006Q1

REPORT INFORMATION
  Report Type: 
  Country: None (occurrence: None)
  Receive Date: 20060201
  Receipt Date: 20051005
  Transmission Date: 20060701
  Serious: No
  Sender: FDA-Public Use
  Company Number: 2005PV003005

PATIENT
  Age: 37 Year
  Sex: Female
  Weight: 127.0072 kg

DRUGS (5)
  1. BYETTA [Suspect]
     Indication: DIABETES MELLITUS NON-INSULIN-DEPENDENT
     Dosage: 5 MCG;SC
     Route: 058
     Dates: start: 20050101
  2. GLUCOPHAGE XR [Concomitant]
  3. AMARYL [Concomitant]
  4. AVANDIA [Concomitant]
  5. ASPIRIN [Concomitant]

REACTIONS (2)
  - INJECTION SITE BRUISING [None]
  - INJECTION SITE HAEMORRHAGE [None]
